FAERS Safety Report 24730559 (Version 3)
Quarter: 2025Q1

REPORT INFORMATION
  Report Type: Report from Study
  Country: US (occurrence: US)
  Receive Date: 20241213
  Receipt Date: 20250221
  Transmission Date: 20250409
  Serious: Yes (Hospitalization)
  Sender: ABBVIE
  Company Number: US-ABBVIE-6040081

PATIENT
  Age: 50 Year
  Sex: Female
  Weight: 64.864 kg

DRUGS (8)
  1. CARIPRAZINE [Suspect]
     Active Substance: CARIPRAZINE
     Indication: Bipolar I disorder
     Route: 048
     Dates: start: 20240924
  2. CLOZARIL [Concomitant]
     Active Substance: CLOZAPINE
     Indication: Bipolar I disorder
     Route: 048
     Dates: end: 20241202
  3. CLOZARIL [Concomitant]
     Active Substance: CLOZAPINE
     Indication: Bipolar I disorder
     Route: 048
     Dates: start: 20241203
  4. LITHIUM [Concomitant]
     Active Substance: LITHIUM
     Indication: Bipolar I disorder
     Route: 048
     Dates: end: 20241202
  5. METFORMIN [Concomitant]
     Active Substance: METFORMIN HYDROCHLORIDE
     Indication: Diabetes mellitus
     Route: 048
  6. FERROUS FUMARATE [Concomitant]
     Active Substance: FERROUS FUMARATE
     Indication: Mineral supplementation
     Route: 048
     Dates: start: 20241202
  7. VITAMINS [Concomitant]
     Active Substance: VITAMINS
     Indication: Vitamin supplementation
     Dosage: 10-0.4 MG
     Route: 048
     Dates: start: 20241202
  8. VITAMIN D3 [Concomitant]
     Active Substance: CHOLECALCIFEROL
     Indication: Vitamin supplementation
     Route: 048
     Dates: start: 20241202

REACTIONS (1)
  - Toxicity to various agents [Recovered/Resolved]

NARRATIVE: CASE EVENT DATE: 20241202
